FAERS Safety Report 5986090-3 (Version None)
Quarter: 2008Q4

REPORT INFORMATION
  Report Type: 
  Country: None (occurrence: None)
  Receive Date: 20081209
  Receipt Date: 20081201
  Transmission Date: 20090506
  Serious: Yes (Other)
  Sender: FDA-Public Use
  Company Number: US-BAYER-200835176NA

PATIENT

DRUGS (2)
  1. AVELOX [Suspect]
     Indication: DRUG USE FOR UNKNOWN INDICATION
     Dates: start: 20080811
  2. TYLENOL W/ CODEINE NO. 4 [Concomitant]

REACTIONS (6)
  - ABDOMINAL PAIN [None]
  - ANAPHYLACTIC REACTION [None]
  - DIZZINESS [None]
  - ERYTHEMA [None]
  - FLUSHING [None]
  - THROAT IRRITATION [None]
